FAERS Safety Report 4638514-1 (Version None)
Quarter: 2005Q2

REPORT INFORMATION
  Report Type: 
  Country: None (occurrence: None)
  Receive Date: 20050418
  Receipt Date: 20050408
  Transmission Date: 20051028
  Serious: Yes (Hospitalization)
  Sender: FDA-Public Use
  Company Number: 2005056614

PATIENT
  Age: 69 Year
  Sex: Female

DRUGS (5)
  1. LIPITOR [Suspect]
     Indication: DYSLIPIDAEMIA
     Dosage: 40 MG (40 MG, 1 IN 1 D), ORAL
     Route: 048
     Dates: start: 20020201
  2. BUFFERIN [Concomitant]
  3. PROPATYLNITRATE (PROPRATYLNITRATE) [Concomitant]
  4. MAPROTILINE HYDROCHLORIDE [Concomitant]
  5. MAPROTILINE HYDROCHLORIDE [Concomitant]

REACTIONS (1)
  - APPENDICITIS [None]
